FAERS Safety Report 17159324 (Version 1)
Quarter: 2019Q4

REPORT INFORMATION
  Report Type: Spontaneous
  Country: US (occurrence: US)
  Receive Date: 20191215
  Receipt Date: 20191215
  Transmission Date: 20200122
  Serious: Yes (Hospitalization)
  Sender: FDA-Public Use
  Company Number: None

PATIENT
  Age: 79 Year
  Sex: Female
  Weight: 52.2 kg

DRUGS (4)
  1. DOCUSATE 100MG BID [Concomitant]
  2. CEPHALEXIN 500MG TID [Concomitant]
  3. METOPROLOL SUCCINATE 100MG DAILY [Concomitant]
  4. RIVAROXABAN [Suspect]
     Active Substance: RIVAROXABAN
     Indication: DEEP VEIN THROMBOSIS
     Route: 048

REACTIONS (6)
  - Syncope [None]
  - Peritoneal haemorrhage [None]
  - Therapy cessation [None]
  - Post procedural haemorrhage [None]
  - Abdominal pain [None]
  - Biopsy liver [None]
